FAERS Safety Report 25009273 (Version 2)
Quarter: 2025Q1

REPORT INFORMATION
  Report Type: Spontaneous
  Country: JP (occurrence: JP)
  Receive Date: 20250225
  Receipt Date: 20250307
  Transmission Date: 20250408
  Serious: Yes (Other)
  Sender: MALLINCKRODT
  Company Number: JP-MALLINCKRODT-MNK202501003

PATIENT
  Age: 40 Year
  Sex: Female

DRUGS (5)
  1. AMITIZA [Suspect]
     Active Substance: LUBIPROSTONE
     Indication: Constipation
  2. AMITIZA [Suspect]
     Active Substance: LUBIPROSTONE
     Route: 048
     Dates: start: 20220705
  3. LINZESS [Suspect]
     Active Substance: LINACLOTIDE
     Indication: Constipation
     Route: 048
  4. LINZESS [Suspect]
     Active Substance: LINACLOTIDE
     Route: 048
  5. BEAULUCK A [Concomitant]
     Indication: Constipation
     Dosage: 10 DOSAGE FORM
     Route: 048

REACTIONS (3)
  - Hypokalaemia [Unknown]
  - Renal failure [Unknown]
  - Intentional overdose [Unknown]
